FAERS Safety Report 21570502 (Version 1)
Quarter: 2022Q4

REPORT INFORMATION
  Report Type: Spontaneous
  Country: US (occurrence: None)
  Receive Date: 20221106
  Receipt Date: 20221106
  Transmission Date: 20230113
  Serious: Yes (Death)
  Sender: FDA-Public Use
  Company Number: None

PATIENT
  Age: 59 Year
  Sex: Female

DRUGS (3)
  1. PAXLOVID [Suspect]
     Active Substance: NIRMATRELVIR\RITONAVIR
  2. ATORVASTATIN CALCIUM [Suspect]
     Active Substance: ATORVASTATIN CALCIUM
  3. NIFEDIPINE [Suspect]
     Active Substance: NIFEDIPINE

REACTIONS (18)
  - Nausea [None]
  - Vomiting [None]
  - Hypotension [None]
  - Pneumonitis [None]
  - Pneumonia [None]
  - Acidosis [None]
  - Hyperkalaemia [None]
  - Acute kidney injury [None]
  - Septic shock [None]
  - Bundle branch block right [None]
  - Ischaemic hepatitis [None]
  - Bradycardia [None]
  - Cardiac arrest [None]
  - Pulseless electrical activity [None]
  - Product prescribing error [None]
  - Contraindicated product prescribed [None]
  - Drug interaction [None]
  - Toxicity to various agents [None]
